FAERS Safety Report 21832085 (Version 1)
Quarter: 2023Q1

REPORT INFORMATION
  Report Type: Spontaneous
  Country: US (occurrence: US)
  Receive Date: 20230106
  Receipt Date: 20230106
  Transmission Date: 20230418
  Serious: Yes (Other)
  Sender: FDA-Public Use
  Company Number: US-ALLERGAN-2300308US

PATIENT
  Sex: Male

DRUGS (1)
  1. LINZESS [Suspect]
     Active Substance: LINACLOTIDE
     Indication: Constipation

REACTIONS (4)
  - Intestinal obstruction [Unknown]
  - Abdominal hernia [Unknown]
  - Gastrointestinal motility disorder [Unknown]
  - Nausea [Unknown]
